FAERS Safety Report 7220462-4 (Version None)
Quarter: 2010Q4

REPORT INFORMATION
  Report Type: 
  Country: None (occurrence: None)
  Receive Date: 20101229
  Receipt Date: 20101216
  Transmission Date: 20110411
  Serious: Yes (Hospitalization)
  Sender: FDA-Public Use
  Company Number: B0690544A

PATIENT
  Age: 19 Year
  Sex: Male

DRUGS (1)
  1. PROPAFENONE HYDROCHLORIDE [Suspect]
     Indication: VENTRICULAR TACHYCARDIA
     Dosage: 140 MG / INTRAVENOUS
     Route: 042

REACTIONS (3)
  - BRUGADA SYNDROME [None]
  - HYPOTENSION [None]
  - PULMONARY CONGESTION [None]
